FAERS Safety Report 10153542 (Version 1)
Quarter: 2014Q2

REPORT INFORMATION
  Report Type: Report from Study
  Country: US (occurrence: US)
  Receive Date: 20140505
  Receipt Date: 20140505
  Transmission Date: 20141212
  Serious: Yes (Hospitalization, Other)
  Sender: FDA-Public Use
  Company Number: US-ABBVIE-14P-163-1229453-00

PATIENT
  Age: 53 Year
  Sex: Female
  Weight: 58.11 kg

DRUGS (8)
  1. HUMIRA [Suspect]
     Indication: RHEUMATOID ARTHRITIS
     Dates: start: 201306, end: 201401
  2. XARELTO [Concomitant]
     Indication: COAGULOPATHY
     Dates: start: 201312
  3. LOVENOX [Concomitant]
     Indication: COAGULOPATHY
     Dates: start: 2013, end: 201402
  4. DOXEPIN [Concomitant]
     Indication: URTICARIA
  5. SIMVASTATIN [Concomitant]
     Indication: BLOOD CHOLESTEROL INCREASED
  6. TOPOMAX [Concomitant]
     Indication: MIGRAINE PROPHYLAXIS
  7. CEFTROZIL [Concomitant]
     Indication: PRODUCT USED FOR UNKNOWN INDICATION
  8. AZITHROMYCIN [Concomitant]
     Indication: PRODUCT USED FOR UNKNOWN INDICATION

REACTIONS (9)
  - Uterine pain [Recovered/Resolved]
  - Dizziness [Recovered/Resolved]
  - Feeling abnormal [Recovered/Resolved]
  - Contusion [Recovered/Resolved]
  - Haemorrhage [Recovered/Resolved]
  - Haemorrhage [Recovered/Resolved]
  - Haemoglobin decreased [Recovered/Resolved]
  - Generalised oedema [Recovered/Resolved]
  - Thrombosis [Recovering/Resolving]
